FAERS Safety Report 10057504 (Version 2)
Quarter: 2014Q2

REPORT INFORMATION
  Report Type: Spontaneous
  Country: US (occurrence: US)
  Receive Date: 20140403
  Receipt Date: 20140613
  Transmission Date: 20141212
  Serious: No
  Sender: FDA-Public Use
  Company Number: US-009507513-1404USA000831

PATIENT
  Age: 37 Year
  Sex: Male
  Weight: 77.98 kg

DRUGS (3)
  1. CLARITIN-D-12 [Suspect]
     Indication: HYPERSENSITIVITY
     Dosage: UNK, UNKNOWN
     Route: 048
     Dates: start: 20140324, end: 20140325
  2. CLARITIN-D-12 [Suspect]
     Indication: RESPIRATORY TRACT CONGESTION
  3. CREATINE [Concomitant]
     Indication: PRODUCT USED FOR UNKNOWN INDICATION
     Dosage: UNK, UNKNOWN

REACTIONS (1)
  - Drug ineffective [Unknown]
